FAERS Safety Report 13788614 (Version 1)
Quarter: 2017Q3

REPORT INFORMATION
  Report Type: Spontaneous
  Country: US (occurrence: US)
  Receive Date: 20170725
  Receipt Date: 20170725
  Transmission Date: 20171127
  Serious: No
  Sender: FDA-Public Use
  Company Number: US-UNITED THERAPEUTICS-UNT-2016-017767

PATIENT
  Age: 75 Year
  Sex: Female
  Weight: 54.42 kg

DRUGS (2)
  1. REMODULIN [Suspect]
     Active Substance: TREPROSTINIL
     Dosage: UNK
     Route: 058
  2. REMODULIN [Suspect]
     Active Substance: TREPROSTINIL
     Indication: PULMONARY HYPERTENSION
     Dosage: 0.040 ?G/KG, CONTINUING
     Route: 058
     Dates: start: 20160311

REACTIONS (8)
  - Infusion site haemorrhage [Unknown]
  - Abdominal pain upper [Unknown]
  - Muscle spasms [Unknown]
  - Muscle strain [Unknown]
  - Infusion site warmth [Unknown]
  - Infusion site erythema [Unknown]
  - Infusion site pain [Unknown]
  - Back pain [Unknown]

NARRATIVE: CASE EVENT DATE: 201611
